FAERS Safety Report 6108042-5 (Version None)
Quarter: 2009Q1

REPORT INFORMATION
  Report Type: 
  Country: None (occurrence: None)
  Receive Date: 20090305
  Receipt Date: 20090305
  Transmission Date: 20090719
  Serious: Yes (Other)
  Sender: FDA-Public Use
  Company Number: None

PATIENT
  Age: 20 Year
  Sex: Female
  Weight: 46.2669 kg

DRUGS (2)
  1. HYDROCORTISONE 1%-P CREAM [Suspect]
     Indication: DRY SKIN
     Dosage: SMALL DAN OF CREAM TWICE A DAY TOP
     Route: 061
     Dates: start: 20090222, end: 20090224
  2. HYDROCORTISONE 1%-P CREAM [Suspect]
     Indication: PRURITUS
     Dosage: SMALL DAN OF CREAM TWICE A DAY TOP
     Route: 061
     Dates: start: 20090222, end: 20090224

REACTIONS (4)
  - DRUG HYPERSENSITIVITY [None]
  - RASH [None]
  - SKIN IRRITATION [None]
  - URTICARIA [None]
